FAERS Safety Report 21720639 (Version 1)
Quarter: 2022Q4

REPORT INFORMATION
  Report Type: Spontaneous
  Country: US (occurrence: US)
  Receive Date: 20221213
  Receipt Date: 20221213
  Transmission Date: 20230113
  Serious: No
  Sender: FDA-Public Use
  Company Number: US-STRIDES ARCOLAB LIMITED-2022SP011459

PATIENT
  Age: 28 Year
  Sex: Male

DRUGS (8)
  1. PREDNISOLONE [Suspect]
     Active Substance: PREDNISOLONE
     Indication: Pain
     Dosage: UNK
     Route: 065
  2. PREDNISOLONE [Suspect]
     Active Substance: PREDNISOLONE
     Indication: Swelling
  3. METHOTREXATE [Suspect]
     Active Substance: METHOTREXATE
     Indication: Sacroiliitis
     Dosage: 10 MILLIGRAM PER WEEK
     Route: 065
  4. METHOTREXATE [Suspect]
     Active Substance: METHOTREXATE
     Dosage: 15 MILLIGRAM PER WEEK
     Route: 065
  5. FOLIC ACID [Suspect]
     Active Substance: FOLIC ACID
     Indication: Sacroiliitis
     Dosage: 1 MILLIGRAM PER DAY
     Route: 065
  6. BACTROBAN [Concomitant]
     Active Substance: MUPIROCIN\MUPIROCIN CALCIUM
     Indication: Product used for unknown indication
     Dosage: UNK
     Route: 061
  7. BACTROBAN [Concomitant]
     Active Substance: MUPIROCIN\MUPIROCIN CALCIUM
     Dosage: UNK (CREAM)
     Route: 061
  8. GABAPENTIN [Concomitant]
     Active Substance: GABAPENTIN
     Indication: Product used for unknown indication
     Dosage: 300 MILLIGRAM PER DAY
     Route: 048

REACTIONS (3)
  - Intentional product misuse [Unknown]
  - Therapy partial responder [Unknown]
  - Off label use [Unknown]
